FAERS Safety Report 25320785 (Version 1)
Quarter: 2025Q2

REPORT INFORMATION
  Report Type: Spontaneous
  Country: US (occurrence: US)
  Receive Date: 20250515
  Receipt Date: 20250515
  Transmission Date: 20250717
  Serious: No
  Sender: SANOFI AVENTIS
  Company Number: US-SANOFI-02518525

PATIENT
  Age: 72 Year
  Sex: Male
  Weight: 86.168 kg

DRUGS (3)
  1. PLAVIX [Suspect]
     Active Substance: CLOPIDOGREL BISULFATE
     Indication: Coronary arterial stent insertion
     Dates: start: 202411
  2. APIXABAN [Suspect]
     Active Substance: APIXABAN
     Indication: Coronary arterial stent insertion
     Dosage: UNK UNK, BID
     Dates: start: 202411
  3. AMLODIPINE [Concomitant]
     Active Substance: AMLODIPINE BESYLATE

REACTIONS (1)
  - Dizziness [Unknown]

NARRATIVE: CASE EVENT DATE: 20250201
